FAERS Safety Report 4519358-8 (Version None)
Quarter: 2004Q4

REPORT INFORMATION
  Report Type: 
  Country: None (occurrence: None)
  Receive Date: 20041201
  Receipt Date: 20041115
  Transmission Date: 20050328
  Serious: Yes (Hospitalization)
  Sender: FDA-Public Use
  Company Number: D01200404425

PATIENT
  Age: 72 Year
  Sex: Male
  Weight: 74.3 kg

DRUGS (2)
  1. CISLPATIN [Suspect]
     Indication: SMALL CELL LUNG CANCER EXTENSIVE STAGE
     Dosage: 80MG/M2 CONT - INTRAVENOUS NOS
     Route: 042
     Dates: start: 20041006, end: 20041006
  2. ETOPOSIDE [Suspect]
     Indication: SMALL CELL LUNG CANCER EXTENSIVE STAGE
     Dosage: 120 MG/M2 GIVEN ON DAYS, 1, 2 AND 3, IN A 30-MINUTE INFUSION - INTRAVENOUS NOS
     Route: 042
     Dates: start: 20041006, end: 20041006

REACTIONS (5)
  - CEREBRAL ISCHAEMIA [None]
  - DIPLOPIA [None]
  - NEUROPATHY [None]
  - NEUROTOXICITY [None]
  - NUCLEAR MAGNETIC RESONANCE IMAGING BRAIN ABNORMAL [None]
